FAERS Safety Report 8443431-5 (Version None)
Quarter: 2012Q2

REPORT INFORMATION
  Report Type: 
  Country: None (occurrence: None)
  Receive Date: 20120618
  Receipt Date: 20120605
  Transmission Date: 20120825
  Serious: Yes (Hospitalization)
  Sender: FDA-Public Use
  Company Number: US-CELGENEUS-163-21880-12022826

PATIENT
  Sex: Male
  Weight: 111.23 kg

DRUGS (21)
  1. LASIX [Concomitant]
     Dosage: 20 MILLIGRAM
     Route: 048
  2. ASPIRIN [Concomitant]
     Dosage: 81 MILLIGRAM
     Route: 048
     Dates: start: 20120223
  3. LISINOPRIL [Concomitant]
     Indication: HYPERTENSION
     Dosage: 20 MILLIGRAM
     Route: 048
     Dates: start: 20120223, end: 20120226
  4. LYRICA [Concomitant]
     Dosage: 100 MILLIGRAM
     Route: 048
     Dates: start: 20120223, end: 20120228
  5. CADUET [Concomitant]
     Indication: HYPERTENSION
     Dosage: 5/20MG
     Route: 048
  6. PEPCID [Concomitant]
     Dosage: 20 MILLIGRAM
     Route: 048
  7. REVLIMID [Suspect]
     Indication: NON-HODGKIN'S LYMPHOMA
     Dosage: 20 MILLIGRAM
     Route: 048
     Dates: start: 20110810, end: 20120224
  8. LOVENOX [Concomitant]
     Indication: ANTICOAGULANT THERAPY
     Dosage: 40MG/0.4ML
     Route: 058
     Dates: start: 20120223
  9. ZOCOR [Concomitant]
     Dosage: 40 MILLIGRAM
     Route: 048
  10. LYRICA [Concomitant]
     Dosage: 100 MILLIGRAM
     Route: 048
     Dates: start: 20120223, end: 20120228
  11. LOPRESSOR [Concomitant]
     Indication: HYPERTENSION
     Dosage: 25 MILLIGRAM
     Route: 048
  12. LISINOPRIL [Concomitant]
     Dosage: 20 MILLIGRAM
     Route: 048
  13. PEPCID [Concomitant]
     Dosage: 20 MILLIGRAM
     Route: 048
     Dates: start: 20120223, end: 20120229
  14. LASIX [Concomitant]
     Dosage: 40 MILLIGRAM
     Route: 048
     Dates: start: 20120229
  15. REVLIMID [Suspect]
     Dosage: 15 MILLIGRAM
     Route: 048
     Dates: start: 20120309
  16. ASPIRIN [Concomitant]
     Dosage: 81 MILLIGRAM
     Route: 048
  17. ZOCOR [Concomitant]
     Dosage: 40 MILLIGRAM
     Route: 048
     Dates: start: 20120223
  18. LOPRESSOR [Concomitant]
     Dosage: 25 MILLIGRAM
     Route: 048
     Dates: start: 20120223, end: 20120226
  19. LYRICA [Concomitant]
     Dosage: 200 MILLIGRAM
     Route: 048
  20. LASIX [Concomitant]
     Dosage: 40 MILLIGRAM
     Route: 041
     Dates: start: 20120223, end: 20120226
  21. LASIX [Concomitant]
     Dosage: 20 MILLIGRAM
     Route: 041
     Dates: start: 20120228, end: 20120228

REACTIONS (1)
  - GENERALISED OEDEMA [None]
